FAERS Safety Report 24238156 (Version 3)
Quarter: 2025Q3

REPORT INFORMATION
  Report Type: Other
  Country: US (occurrence: US)
  Receive Date: 20240822
  Receipt Date: 20250918
  Transmission Date: 20251020
  Serious: No
  Sender: TRAVERE THERAPEUTICS
  Company Number: US-TRAVERE-2024TVT00790

PATIENT
  Sex: Male

DRUGS (2)
  1. FILSPARI [Suspect]
     Active Substance: SPARSENTAN
     Indication: IgA nephropathy
     Dosage: 200 MG TABLETS TAKE 2 TABS DAILY
     Route: 048
  2. FILSPARI [Suspect]
     Active Substance: SPARSENTAN
     Dosage: 200 MG TABLETS TAKE 2 TABS DAILY APR-2025 OR MAY-2025
     Route: 048
     Dates: end: 202504

REACTIONS (2)
  - Hepatic enzyme increased [None]
  - Product administration error [Unknown]
